FAERS Safety Report 12215453 (Version 1)
Quarter: 2016Q1

REPORT INFORMATION
  Report Type: Spontaneous
  Country: US (occurrence: US)
  Receive Date: 20160328
  Receipt Date: 20160328
  Transmission Date: 20160526
  Serious: Yes (Death)
  Sender: FDA-Public Use
  Company Number: US-INSYS THERAPEUTICS, INC-INS201603-000125

PATIENT
  Age: 57 Year
  Sex: Male

DRUGS (2)
  1. SUBSYS [Suspect]
     Active Substance: FENTANYL
     Indication: BREAKTHROUGH PAIN
     Route: 060
     Dates: start: 20160224, end: 20160304
  2. SUBSYS [Suspect]
     Active Substance: FENTANYL
     Indication: BONE NEOPLASM

REACTIONS (1)
  - Death [Fatal]

NARRATIVE: CASE EVENT DATE: 20160304
